FAERS Safety Report 6754233-X (Version None)
Quarter: 2010Q2

REPORT INFORMATION
  Report Type: 
  Country: None (occurrence: None)
  Receive Date: 20100601
  Receipt Date: 20100517
  Transmission Date: 20101027
  Serious: Yes (Other)
  Sender: FDA-Public Use
  Company Number: GB-DEXPHARM-20100638

PATIENT
  Sex: Female

DRUGS (1)
  1. PERIOCHIP [Suspect]
     Dosage: 2.5 MG MILLIGRAM(S) SEP. DOSAGES / INTERVAL: 1 IN 1 DAY

REACTIONS (8)
  - CONVULSION [None]
  - DYSPNOEA [None]
  - ERYTHEMA [None]
  - PRURITUS GENERALISED [None]
  - PYREXIA [None]
  - SYNCOPE [None]
  - THROAT TIGHTNESS [None]
  - URTICARIA [None]
